FAERS Safety Report 5832900-X (Version None)
Quarter: 2008Q3

REPORT INFORMATION
  Report Type: 
  Country: None (occurrence: None)
  Receive Date: 20080730
  Receipt Date: 20080717
  Transmission Date: 20090109
  Serious: Yes (Death)
  Sender: FDA-Public Use
  Company Number: BR-JNJFOC-20080704368

PATIENT
  Age: 32 Year
  Sex: Male
  Weight: 68 kg

DRUGS (2)
  1. TMC114 (DARUNAVIR) TABLETS [Suspect]
     Indication: HIV INFECTION
     Dosage: 800 MG, 1 IN 1 DAY, ORAL
     Route: 048
     Dates: start: 20080619
  2. RITONAVIR (RITONAVIR) [Suspect]
     Indication: HIV INFECTION
     Dosage: 100 MG, 1 IN 1  DAY, ORAL
     Route: 048
     Dates: start: 20080619

REACTIONS (1)
  - PNEUMONIA [None]
